FAERS Safety Report 7785821-X (Version None)
Quarter: 2011Q3

REPORT INFORMATION
  Report Type: 
  Country: None (occurrence: None)
  Receive Date: 20110929
  Receipt Date: 20110916
  Transmission Date: 20111222
  Serious: Yes (Hospitalization)
  Sender: FDA-Public Use
  Company Number: LB-SANOFI-AVENTIS-2011SA061788

PATIENT

DRUGS (3)
  1. LOVENOX [Suspect]
     Indication: ANTICOAGULANT THERAPY
     Dosage: 20 MG OR 40 MG ONCE DAILY PRE-FILLED SYRINGES
     Route: 065
  2. ACETYLSALICYLIC ACID SRT [Suspect]
     Indication: ANTICOAGULANT THERAPY
     Route: 065
  3. CLOPIDOGREL BISULFATE [Suspect]
     Indication: ANTICOAGULANT THERAPY
     Route: 065

REACTIONS (7)
  - HAEMORRHAGE [None]
  - DRUG INEFFECTIVE [None]
  - ACUTE CORONARY SYNDROME [None]
  - THROMBOCYTOPENIA [None]
  - DEEP VEIN THROMBOSIS [None]
  - OVERDOSE [None]
  - PULMONARY EMBOLISM [None]
